FAERS Safety Report 9132084 (Version 1)
Quarter: 2013Q1

REPORT INFORMATION
  Report Type: Spontaneous
  Country: US (occurrence: US)
  Receive Date: 20130301
  Receipt Date: 20130301
  Transmission Date: 20140127
  Serious: Yes (Other)
  Sender: FDA-Public Use
  Company Number: US-BAYER-2013-026509

PATIENT
  Age: 38 Year
  Sex: Female
  Weight: 90 kg

DRUGS (5)
  1. BAYER ADVANCED ASPIRIN EXTRA STRENGTH [Suspect]
     Dosage: 3 DF, TID
     Route: 048
     Dates: start: 201302, end: 201302
  2. BAYER GENUINE ASPIRIN ORIGINAL STRENGTH [Suspect]
     Dosage: 3 UNK, UNK
     Route: 048
     Dates: start: 201301
  3. VITAMIN B3 [Concomitant]
  4. ANTIDEPRESSANTS [Concomitant]
  5. THYROID MEDICATION [Concomitant]

REACTIONS (4)
  - Faeces discoloured [Recovered/Resolved]
  - Abdominal discomfort [Recovered/Resolved]
  - Incorrect drug administration duration [None]
  - Therapeutic response unexpected [None]
